FAERS Safety Report 7344592-1 (Version None)
Quarter: 2011Q1

REPORT INFORMATION
  Report Type: 
  Country: None (occurrence: None)
  Receive Date: 20110307
  Receipt Date: 20110307
  Transmission Date: 20110831
  Serious: No
  Sender: FDA-Public Use
  Company Number: None

PATIENT
  Sex: Female

DRUGS (2)
  1. REVLIMID [Concomitant]
  2. DOXIL [Suspect]
     Indication: MULTIPLE MYELOMA

REACTIONS (2)
  - ADVERSE EVENT [None]
  - SWELLING [None]
